APPROVED DRUG PRODUCT: LATISSE
Active Ingredient: BIMATOPROST
Strength: 0.03%
Dosage Form/Route: SOLUTION/DROPS;TOPICAL
Application: N022369 | Product #001 | TE Code: AT
Applicant: ABBVIE INC
Approved: Dec 24, 2008 | RLD: Yes | RS: Yes | Type: RX